FAERS Safety Report 18820418 (Version 3)
Quarter: 2021Q1

REPORT INFORMATION
  Report Type: Spontaneous
  Country: IN (occurrence: IN)
  Receive Date: 20210202
  Receipt Date: 20210224
  Transmission Date: 20210419
  Serious: Yes (Other)
  Sender: FDA-Public Use
  Company Number: IN-CIPLA LTD.-2021IN00701

PATIENT

DRUGS (2)
  1. VIRADAY [Suspect]
     Active Substance: EFAVIRENZ\EMTRICITABINE\TENOFOVIR DISOPROXIL FUMARATE
     Indication: HIV INFECTION
     Dosage: 1 DOSAGE FORM, QD, WITH WATER
     Route: 048
  2. VIRADAY [Suspect]
     Active Substance: EFAVIRENZ\EMTRICITABINE\TENOFOVIR DISOPROXIL FUMARATE
     Dosage: 1 DOSAGE FORM, QD, WITH WATER
     Route: 048
     Dates: start: 2020

REACTIONS (8)
  - Product quality issue [Unknown]
  - Suspected counterfeit product [Unknown]
  - Product physical issue [Unknown]
  - Product packaging issue [Unknown]
  - Asphyxia [Recovered/Resolved]
  - Product colour issue [Unknown]
  - Abdominal pain upper [Recovered/Resolved]
  - Product container issue [Unknown]

NARRATIVE: CASE EVENT DATE: 2020
